FAERS Safety Report 15586519 (Version 1)
Quarter: 2018Q4

REPORT INFORMATION
  Report Type: Spontaneous
  Country: US (occurrence: US)
  Receive Date: 20181101
  Receipt Date: 20181101
  Transmission Date: 20190205
  Serious: Yes (Other)
  Sender: FDA-Public Use
  Company Number: None

PATIENT
  Age: 63 Year
  Sex: Female
  Weight: 98.55 kg

DRUGS (9)
  1. PROAIR HFA [Concomitant]
     Active Substance: ALBUTEROL SULFATE
  2. SYNTHROID [Concomitant]
     Active Substance: LEVOTHYROXINE SODIUM
  3. SINGULAIR [Concomitant]
     Active Substance: MONTELUKAST SODIUM
  4. ARVOSTATION [Concomitant]
  5. VITAMIN D [Concomitant]
     Active Substance: CHOLECALCIFEROL
  6. CHLORHEXIDINE [Suspect]
     Active Substance: CHLORHEXIDINE
     Indication: PREOPERATIVE CARE
     Route: 061
     Dates: start: 20181024, end: 20181024
  7. ADVAIR HFA [Concomitant]
     Active Substance: FLUTICASONE PROPIONATE\SALMETEROL XINAFOATE
  8. IRESBESARTAN [Concomitant]
  9. DISMISTA [Concomitant]

REACTIONS (10)
  - Skin burning sensation [None]
  - Skin discolouration [None]
  - Wrong technique in product usage process [None]
  - Rash [None]
  - Application site reaction [None]
  - Post procedural complication [None]
  - Procedural pain [None]
  - Post procedural swelling [None]
  - Dry skin [None]
  - Chemical burn of skin [None]

NARRATIVE: CASE EVENT DATE: 20181024
